FAERS Safety Report 12987941 (Version 1)
Quarter: 2016Q4

REPORT INFORMATION
  Report Type: Spontaneous
  Country: GB (occurrence: GB)
  Receive Date: 20161130
  Receipt Date: 20161130
  Transmission Date: 20170207
  Serious: Yes (Hospitalization)
  Sender: FDA-Public Use
  Company Number: GB-TEVA-714699ACC

PATIENT
  Age: 38 Year
  Sex: Female

DRUGS (3)
  1. CICLOSPORIN [Suspect]
     Active Substance: CYCLOSPORINE
     Dosage: 200 MILLIGRAM DAILY;
     Route: 065
     Dates: start: 20130502, end: 20140127
  2. CICLOSPORIN [Suspect]
     Active Substance: CYCLOSPORINE
     Indication: PSORIASIS
     Dosage: 200 MILLIGRAM DAILY;
     Route: 065
     Dates: start: 20160512, end: 20160615
  3. CICLOSPORIN [Suspect]
     Active Substance: CYCLOSPORINE
     Dosage: 100 MILLIGRAM DAILY;
     Route: 065

REACTIONS (7)
  - Tonsillitis [Recovered/Resolved]
  - Blood creatinine increased [Recovered/Resolved]
  - Nausea [Recovered/Resolved]
  - Pyrexia [Recovered/Resolved]
  - Abdominal pain [Recovered/Resolved]
  - Stress [Recovered/Resolved]
  - Appendicitis [Recovered/Resolved]

NARRATIVE: CASE EVENT DATE: 20130617
